FAERS Safety Report 7204693 (Version 16)
Quarter: 2013Q3

REPORT INFORMATION
  Report Type: Spontaneous
  Country: US (occurrence: US)
  Receive Date: 20091208
  Receipt Date: 20130801
  Transmission Date: 20140515
  Serious: Yes (Hospitalization, Disabling, Other)
  Sender: FDA-Public Use
  Company Number: PHEH2009US16948

PATIENT
  Age: 58 Year
  Sex: Male
  Weight: 92.97 kg

DRUGS (41)
  1. ZOMETA [Suspect]
     Indication: PLASMA CELL MYELOMA
     Dosage: 4 MG, QW3
     Dates: start: 200403, end: 200605
  2. COREG [Concomitant]
  3. COUMADINE [Concomitant]
  4. OXYCODONE [Concomitant]
  5. LASIX [Concomitant]
  6. SULFADIAZINE [Concomitant]
  7. PROMETHAZINE [Concomitant]
  8. ASPIRIN (E.C.) [Concomitant]
  9. CYPROHEPTADINE [Concomitant]
  10. LORAZEPAM [Concomitant]
  11. ATIVAN [Concomitant]
     Dosage: 1 MG, BID
  12. PERCOCET [Concomitant]
  13. CELEXA [Concomitant]
     Dosage: 20 MG, BID
  14. PHENERGAN [Concomitant]
     Dosage: 25 MG, PRN
  15. PLAQUENIL [Concomitant]
     Dosage: 200 MG, QD
  16. SALSALATE [Concomitant]
  17. MULTIVITAMIN [Concomitant]
  18. PROTONIX [Concomitant]
  19. PROCRIT [Concomitant]
  20. POTASSIUM [Concomitant]
  21. CALCIUM [Concomitant]
  22. IRON [Concomitant]
  23. OMEPRAZOLE [Concomitant]
  24. FLONASE [Concomitant]
  25. GABAPENTIN [Concomitant]
  26. DULCOLAX [Concomitant]
  27. ZOFRAN [Concomitant]
  28. SULFASALAZINE [Concomitant]
     Dosage: 500 MG, BID
     Route: 048
  29. REVLIMID [Concomitant]
  30. DECADRON [Concomitant]
  31. COLACE [Concomitant]
  32. NEURONTIN [Concomitant]
  33. AUGMENTIN [Concomitant]
  34. THALIDOMIDE [Concomitant]
  35. VELCADE [Concomitant]
  36. ARANESP [Concomitant]
  37. XANAX [Concomitant]
     Dosage: 0.5 MG, TID
  38. LACTOBACILLUS [Concomitant]
  39. KCL [Concomitant]
     Dosage: 20 MEQ, UNK
  40. LISINOPRIL [Concomitant]
     Dosage: 5 MG, QD
  41. CLINDAMYCIN [Concomitant]
     Dosage: 500 MG, BID

REACTIONS (96)
  - Pneumonia [Unknown]
  - Pleural effusion [Unknown]
  - Pulmonary granuloma [Unknown]
  - Skin lesion [Unknown]
  - Squamous cell carcinoma [Unknown]
  - Local swelling [Unknown]
  - Erythema [Unknown]
  - Dyspnoea exertional [Unknown]
  - Osteonecrosis of jaw [Unknown]
  - Injury [Unknown]
  - Pain [Unknown]
  - Anxiety [Unknown]
  - Anhedonia [Unknown]
  - Osteomyelitis [Unknown]
  - Cellulitis [Unknown]
  - Intervertebral disc degeneration [Unknown]
  - Gastrooesophageal reflux disease [Recovered/Resolved]
  - Arthritis [Unknown]
  - Sleep apnoea syndrome [Unknown]
  - Oedema [Unknown]
  - Skin cancer [Unknown]
  - Second primary malignancy [Unknown]
  - Musculoskeletal pain [Unknown]
  - Cardiomyopathy [Unknown]
  - Left ventricular dysfunction [Unknown]
  - Ventricular hypokinesia [Unknown]
  - Tenosynovitis [Unknown]
  - Infection [Unknown]
  - Seborrhoeic dermatitis [Unknown]
  - Hypokalaemia [Unknown]
  - Asthenia [Unknown]
  - Hypoaesthesia [Unknown]
  - Arthralgia [Unknown]
  - Constipation [Unknown]
  - Overweight [Unknown]
  - Myalgia [Unknown]
  - Neuropathy peripheral [Unknown]
  - Spinal osteoarthritis [Unknown]
  - Plasma cell myeloma [Unknown]
  - Hypotension [Unknown]
  - Leukopenia [Unknown]
  - Neutropenia [Unknown]
  - Thrombocytopenia [Unknown]
  - Deep vein thrombosis [Unknown]
  - Fatigue [Unknown]
  - Osteopenia [Unknown]
  - Diplopia [Unknown]
  - Deafness [Unknown]
  - Tinnitus [Unknown]
  - Oral pain [Unknown]
  - Breath odour [Unknown]
  - Decreased appetite [Unknown]
  - Diarrhoea [Unknown]
  - Headache [Unknown]
  - Confusional state [Unknown]
  - Depression [Unknown]
  - Rotator cuff syndrome [Unknown]
  - Vascular compression [Unknown]
  - Hyponatraemia [Unknown]
  - Cardiac failure congestive [Unknown]
  - Superior vena cava syndrome [Unknown]
  - Coronary artery disease [Unknown]
  - Swelling face [Unknown]
  - Local swelling [Unknown]
  - Bone loss [Unknown]
  - Staphylococcal infection [Unknown]
  - Accident [Unknown]
  - Oral cavity fistula [Unknown]
  - Primary sequestrum [Unknown]
  - Exposed bone in jaw [Unknown]
  - Dental caries [Unknown]
  - Ear disorder [Unknown]
  - Rheumatoid arthritis [Unknown]
  - Activities of daily living impaired [Unknown]
  - Joint dislocation [Unknown]
  - Tendon rupture [Unknown]
  - Bone contusion [Unknown]
  - Anaemia [Unknown]
  - Mastication disorder [Unknown]
  - Paraproteinaemia [Unknown]
  - Meniscus injury [Unknown]
  - Bursitis [Unknown]
  - Chondromalacia [Unknown]
  - Bone marrow oedema [Unknown]
  - Lymphadenopathy [Unknown]
  - Humerus fracture [Unknown]
  - Tendonitis [Unknown]
  - Peripheral vascular disorder [Unknown]
  - Sinus bradycardia [Unknown]
  - Atrioventricular block first degree [Unknown]
  - Bundle branch block left [Unknown]
  - Periostitis [Unknown]
  - Arteriosclerosis [Unknown]
  - Bone lesion [Unknown]
  - Osteitis [Unknown]
  - Ulcer [Unknown]
